FAERS Safety Report 23580479 (Version 1)
Quarter: 2024Q1

REPORT INFORMATION
  Report Type: Report from Study
  Country: ES (occurrence: ES)
  Receive Date: 20240229
  Receipt Date: 20240229
  Transmission Date: 20240410
  Serious: Yes (Hospitalization)
  Sender: FDA-Public Use
  Company Number: ES-ELI_LILLY_AND_COMPANY-ES202211008277

PATIENT
  Age: 56 Year
  Sex: Female

DRUGS (8)
  1. FENTANYL [Suspect]
     Active Substance: FENTANYL\FENTANYL CITRATE
     Indication: Product used for unknown indication
     Dosage: UNK UNK, UNKNOWN
     Route: 065
  2. ABEMACICLIB [Suspect]
     Active Substance: ABEMACICLIB
     Indication: Breast cancer metastatic
     Dosage: 300 MILLIGRAM, QD (150 MG, BID)
     Route: 048
     Dates: start: 20221112
  3. ABEMACICLIB [Suspect]
     Active Substance: ABEMACICLIB
     Indication: Breast cancer recurrent
     Dosage: 200 MILLIGRAM, QD (100 MG, BID)
     Route: 048
  4. DEXAMETHASONE [Concomitant]
     Active Substance: DEXAMETHASONE
     Indication: Product used for unknown indication
     Dosage: UNK
     Route: 065
  5. MORPHINE SULFATE [Concomitant]
     Active Substance: MORPHINE SULFATE
     Indication: Pain
     Dosage: UNK UNK, DAILY
  6. LETROZOLE [Concomitant]
     Active Substance: LETROZOLE
     Indication: Product used for unknown indication
     Dosage: UNK
     Route: 065
  7. GOSERELIN [Concomitant]
     Active Substance: GOSERELIN
     Indication: Menopause
     Dosage: UNK
     Route: 065
  8. MORPHINE [Concomitant]
     Active Substance: MORPHINE
     Indication: Pain
     Dosage: UNK
     Route: 065

REACTIONS (22)
  - Blood potassium decreased [Recovered/Resolved]
  - Gastritis [Recovered/Resolved]
  - Sleep disorder due to general medical condition, insomnia type [Not Recovered/Not Resolved]
  - Urinary tract infection [Recovered/Resolved]
  - Chills [Not Recovered/Not Resolved]
  - Renal pain [Recovering/Resolving]
  - Hepatic pain [Recovering/Resolving]
  - Pallor [Not Recovered/Not Resolved]
  - Dizziness [Unknown]
  - Constipation [Recovered/Resolved]
  - Malaise [Recovered/Resolved]
  - Vomiting [Recovered/Resolved]
  - Paraesthesia [Recovered/Resolved]
  - Decreased appetite [Recovering/Resolving]
  - Tremor [Recovering/Resolving]
  - Anxiety [Not Recovered/Not Resolved]
  - Diarrhoea [Not Recovered/Not Resolved]
  - Fatigue [Not Recovered/Not Resolved]
  - Asthenia [Unknown]
  - Abdominal pain upper [Not Recovered/Not Resolved]
  - Nausea [Recovered/Resolved]
  - Hypoaesthesia [Not Recovered/Not Resolved]

NARRATIVE: CASE EVENT DATE: 20221112
